FAERS Safety Report 9262446 (Version 1)
Quarter: 2013Q2

REPORT INFORMATION
  Report Type: Spontaneous
  Country: GB (occurrence: None)
  Receive Date: 20130425
  Receipt Date: 20130425
  Transmission Date: 20140414
  Serious: Yes (Other)
  Sender: FDA-Public Use
  Company Number: GER/UKI/13/0029208

PATIENT
  Age: 60 Year
  Sex: Male
  Weight: 66.9 kg

DRUGS (2)
  1. OLANZAPINE (OLANZAPINE) [Suspect]
     Indication: SCHIZOPHRENIA, PARANOID TYPE
     Dosage: 20 MG ORAL
     Dates: start: 20130103, end: 20130114
  2. CLOZAPINE (CLOZAPINE) [Concomitant]

REACTIONS (1)
  - Hyponatraemia [None]
